FAERS Safety Report 14655639 (Version 2)
Quarter: 2018Q2

REPORT INFORMATION
  Report Type: Report from Study
  Country: US (occurrence: US)
  Receive Date: 20180319
  Receipt Date: 20180413
  Transmission Date: 20180711
  Serious: Yes (Hospitalization)
  Sender: FDA-Public Use
  Company Number: US-TEVA-2018-US-871384

PATIENT
  Age: 50 Year
  Sex: Male

DRUGS (12)
  1. GLUCOPHAGE [Concomitant]
     Active Substance: METFORMIN HYDROCHLORIDE
  2. DIVALPROEX SODIUM ER [Concomitant]
     Active Substance: DIVALPROEX SODIUM
  3. INDERAL [Concomitant]
     Active Substance: PROPRANOLOL HYDROCHLORIDE
  4. FLUPHENAZINE [Concomitant]
     Active Substance: FLUPHENAZINE
     Route: 065
  5. LISINOPRIL. [Concomitant]
     Active Substance: LISINOPRIL
  6. FLUPHENAZINE [Concomitant]
     Active Substance: FLUPHENAZINE
     Route: 048
  7. ZOCOR [Concomitant]
     Active Substance: SIMVASTATIN
  8. BENZATROPINE [Concomitant]
     Active Substance: BENZTROPINE
  9. PANTOPRAZOLE [Concomitant]
     Active Substance: PANTOPRAZOLE
  10. FUROSEMIDE. [Concomitant]
     Active Substance: FUROSEMIDE
  11. CLOZAPINE. [Suspect]
     Active Substance: CLOZAPINE
     Route: 048
  12. DECANOATE [Concomitant]

REACTIONS (5)
  - Gait disturbance [Unknown]
  - Drooling [Not Recovered/Not Resolved]
  - Fatigue [Not Recovered/Not Resolved]
  - Tremor [Unknown]
  - Dysarthria [Not Recovered/Not Resolved]

NARRATIVE: CASE EVENT DATE: 20171207
